FAERS Safety Report 6834487-1 (Version None)
Quarter: 2010Q3

REPORT INFORMATION
  Report Type: 
  Country: None (occurrence: None)
  Receive Date: 20100712
  Receipt Date: 20070829
  Transmission Date: 20110219
  Serious: No
  Sender: FDA-Public Use
  Company Number: US-PFIZER INC-2007032124

PATIENT
  Sex: Female
  Weight: 57.2 kg

DRUGS (10)
  1. CHANTIX [Suspect]
     Indication: SMOKING CESSATION THERAPY
     Dates: start: 20070326, end: 20070419
  2. CHANTIX [Suspect]
     Indication: NICOTINE DEPENDENCE
  3. PROTONIX [Concomitant]
  4. LISINOPRIL [Concomitant]
  5. ZETIA [Concomitant]
  6. GEMFIBROZIL [Concomitant]
  7. CALCIUM WITH VITAMIN D [Concomitant]
  8. FOSAMAX [Concomitant]
  9. ALAVERT [Concomitant]
  10. COMBIVENT [Concomitant]

REACTIONS (2)
  - HYPERSOMNIA [None]
  - SOMNOLENCE [None]
